FAERS Safety Report 16635710 (Version 1)
Quarter: 2019Q3

REPORT INFORMATION
  Report Type: Spontaneous
  Country: AU (occurrence: AU)
  Receive Date: 20190726
  Receipt Date: 20190726
  Transmission Date: 20191004
  Serious: Yes (Other)
  Sender: FDA-Public Use
  Company Number: AU-TEVA-2019-AU-1083035

PATIENT
  Sex: Female

DRUGS (1)
  1. COPAXONE [Suspect]
     Active Substance: GLATIRAMER ACETATE
     Route: 058
     Dates: start: 201903

REACTIONS (31)
  - Gait disturbance [Unknown]
  - Vomiting [Unknown]
  - Throat tightness [Unknown]
  - Spinal pain [Unknown]
  - Feeling cold [Unknown]
  - Hypotonia [Unknown]
  - Loss of consciousness [Unknown]
  - Feeling hot [Unknown]
  - Swelling face [Unknown]
  - Tremor [Unknown]
  - Pain [Unknown]
  - Visual impairment [Unknown]
  - Fear of injection [Unknown]
  - Pallor [Unknown]
  - Urinary incontinence [Unknown]
  - Arthralgia [Unknown]
  - Feeling abnormal [Unknown]
  - Chills [Unknown]
  - Dyspnoea [Unknown]
  - Back pain [Unknown]
  - Erythema [Unknown]
  - Anal incontinence [Unknown]
  - Pain in extremity [Unknown]
  - Restlessness [Unknown]
  - Muscle spasms [Unknown]
  - Cardiac discomfort [Unknown]
  - Adverse event [Unknown]
  - Shock [Unknown]
  - Neuralgia [Unknown]
  - Musculoskeletal pain [Unknown]
  - Headache [Unknown]
